FAERS Safety Report 22651128 (Version 1)
Quarter: 2023Q2

REPORT INFORMATION
  Report Type: Report from Study
  Country: FR (occurrence: FR)
  Receive Date: 20230628
  Receipt Date: 20230628
  Transmission Date: 20230722
  Serious: Yes (Hospitalization)
  Sender: FDA-Public Use
  Company Number: FR-JNJFOC-20230632186

PATIENT
  Age: 41 Year
  Sex: Female
  Weight: 95 kg

DRUGS (8)
  1. AMIVANTAMAB [Suspect]
     Active Substance: AMIVANTAMAB
     Indication: Non-small cell lung cancer
     Dosage: DOSE ALSO REPORTED AS 14 ML, 25R VIAL
     Route: 058
     Dates: start: 20230613, end: 20230613
  2. DOXYLAMINE SUCCINATE [Concomitant]
     Active Substance: DOXYLAMINE SUCCINATE
     Indication: Sleep disorder therapy
     Route: 048
     Dates: start: 20230101
  3. FLUOXETINE [Concomitant]
     Active Substance: FLUOXETINE HYDROCHLORIDE
     Indication: Antidepressant therapy
     Route: 048
     Dates: start: 20230101
  4. ACETAMINOPHEN [Concomitant]
     Active Substance: ACETAMINOPHEN
     Indication: Chest pain
     Route: 048
     Dates: start: 20230526
  5. MACROGOL 4000;POTASSIUM CHLORIDE;SODIUM BICARBONATE;SODIUM CHLORIDE [Concomitant]
     Indication: Constipation prophylaxis
     Route: 048
     Dates: start: 20230606
  6. NALOXONE HYDROCHLORIDE\OXYCODONE HYDROCHLORIDE [Concomitant]
     Active Substance: NALOXONE HYDROCHLORIDE\OXYCODONE HYDROCHLORIDE
     Indication: Chest pain
     Route: 048
     Dates: start: 20230606
  7. OXYCODONE [Concomitant]
     Active Substance: OXYCODONE
     Indication: Chest pain
     Route: 048
     Dates: start: 20230606
  8. ENOXAPARIN [Concomitant]
     Active Substance: ENOXAPARIN
     Indication: Prophylaxis
     Dosage: 4000 (NO UNIT  PROVIDED)
     Route: 042
     Dates: start: 20230613

REACTIONS (1)
  - Administration related reaction [Recovered/Resolved]

NARRATIVE: CASE EVENT DATE: 20230613
